FAERS Safety Report 6940563-5 (Version None)
Quarter: 2010Q3

REPORT INFORMATION
  Report Type: 
  Country: None (occurrence: None)
  Receive Date: 20100820
  Receipt Date: 20100813
  Transmission Date: 20110219
  Serious: Yes (Life-Threatening, Hospitalization, Other)
  Sender: FDA-Public Use
  Company Number: DSA_43517_2010

PATIENT
  Age: 18 Year
  Sex: Female

DRUGS (9)
  1. XENAZINE [Suspect]
     Indication: CEREBRAL PALSY
     Dosage: (12.T MG QAM AND 25 MG QPM; TOTAL DAILY DOSE 37.5 MG ORAL), (12.5  MG BID ORAL)
     Route: 048
     Dates: start: 20100703, end: 20100711
  2. XENAZINE [Suspect]
     Indication: DYSTONIA
     Dosage: (12.T MG QAM AND 25 MG QPM; TOTAL DAILY DOSE 37.5 MG ORAL), (12.5  MG BID ORAL)
     Route: 048
     Dates: start: 20100703, end: 20100711
  3. XENAZINE [Suspect]
     Indication: CEREBRAL PALSY
     Dosage: (12.T MG QAM AND 25 MG QPM; TOTAL DAILY DOSE 37.5 MG ORAL), (12.5  MG BID ORAL)
     Route: 048
     Dates: start: 20100712, end: 20100713
  4. XENAZINE [Suspect]
     Indication: DYSTONIA
     Dosage: (12.T MG QAM AND 25 MG QPM; TOTAL DAILY DOSE 37.5 MG ORAL), (12.5  MG BID ORAL)
     Route: 048
     Dates: start: 20100712, end: 20100713
  5. FENTANYL CITRATE [Concomitant]
  6. ANTIBIOTICS [Concomitant]
  7. BACLOFEN [Concomitant]
  8. ATIVAN [Concomitant]
  9. PEPCID [Concomitant]

REACTIONS (7)
  - ACUTE RESPIRATORY DISTRESS SYNDROME [None]
  - ALANINE AMINOTRANSFERASE INCREASED [None]
  - ASPARTATE AMINOTRANSFERASE INCREASED [None]
  - CHOLANGITIS ACUTE [None]
  - JAUNDICE [None]
  - PYREXIA [None]
  - VOMITING [None]
